FAERS Safety Report 12253422 (Version 1)
Quarter: 2016Q2

REPORT INFORMATION
  Report Type: Spontaneous
  Country: US (occurrence: None)
  Receive Date: 20160408
  Receipt Date: 20160408
  Transmission Date: 20160815
  Serious: No
  Sender: FDA-Public Use
  Company Number: None

PATIENT
  Age: 26 Month
  Sex: Male

DRUGS (1)
  1. LUMIZYME [Suspect]
     Active Substance: ALGLUCOSIDASE ALFA
     Indication: GLYCOGEN STORAGE DISEASE TYPE I
     Route: 042
     Dates: start: 20150819

REACTIONS (3)
  - Device malfunction [None]
  - Mental impairment [None]
  - Speech disorder [None]

NARRATIVE: CASE EVENT DATE: 20160405
